FAERS Safety Report 5774004-0 (Version None)
Quarter: 2008Q2

REPORT INFORMATION
  Report Type: 
  Country: None (occurrence: None)
  Receive Date: 20080616
  Receipt Date: 20080603
  Transmission Date: 20081010
  Serious: Yes (Hospitalization)
  Sender: FDA-Public Use
  Company Number: DE-ROCHE-563117

PATIENT
  Sex: Female
  Weight: 61 kg

DRUGS (3)
  1. PEGASYS [Suspect]
     Route: 058
     Dates: start: 20071120
  2. RIBAVIRIN [Suspect]
     Dosage: FREQUENCY REPORTED AS 2-0-2
     Route: 048
     Dates: start: 20071120
  3. TELAPREVIR [Suspect]
     Route: 048
     Dates: start: 20071120, end: 20080211

REACTIONS (1)
  - SYNCOPE [None]
